FAERS Safety Report 7494487-8 (Version None)
Quarter: 2011Q2

REPORT INFORMATION
  Report Type: 
  Country: None (occurrence: None)
  Receive Date: 20110520
  Receipt Date: 20110517
  Transmission Date: 20111010
  Serious: Yes (Other)
  Sender: FDA-Public Use
  Company Number: US-PFIZER INC-2011107084

PATIENT
  Sex: Female

DRUGS (1)
  1. XALATAN [Suspect]
     Dosage: IN HER RIGHT EYE
     Route: 047

REACTIONS (3)
  - EYE HAEMORRHAGE [None]
  - EYE DISORDER [None]
  - GROWTH OF EYELASHES [None]
